FAERS Safety Report 7458450-5 (Version None)
Quarter: 2011Q2

REPORT INFORMATION
  Report Type: 
  Country: None (occurrence: None)
  Receive Date: 20110504
  Receipt Date: 20110426
  Transmission Date: 20111010
  Serious: Yes (Death, Life-Threatening)
  Sender: FDA-Public Use
  Company Number: B0716446A

PATIENT
  Sex: Female
  Weight: 33.6 kg

DRUGS (8)
  1. TACROLIMUS HYDRATE [Concomitant]
     Indication: IMMUNOSUPPRESSION
     Dosage: 1.5MG PER DAY
     Route: 065
     Dates: start: 20030821, end: 20030915
  2. FRAGMIN [Concomitant]
     Dosage: 2.7ML PER DAY
     Route: 042
     Dates: end: 20030925
  3. DEPAKENE [Concomitant]
     Dosage: 600MG PER DAY
     Route: 048
     Dates: end: 20030818
  4. ZOVIRAX [Suspect]
     Dosage: 540MG PER DAY
     Route: 042
     Dates: end: 20030829
  5. BUSULFAN [Suspect]
     Indication: ALLOGENIC BONE MARROW TRANSPLANTATION THERAPY
     Dosage: 1MGK PER DAY
     Route: 042
     Dates: start: 20030816, end: 20030817
  6. ALKERAN [Suspect]
     Indication: ALLOGENIC BONE MARROW TRANSPLANTATION THERAPY
     Dosage: 90MGM2 PER DAY
     Route: 042
     Dates: start: 20030817, end: 20030818
  7. GASTER [Suspect]
     Dosage: 30MG PER DAY
     Route: 042
     Dates: end: 20030925
  8. URSO 250 [Concomitant]
     Dosage: 3IUAX PER DAY
     Route: 048
     Dates: end: 20030909

REACTIONS (8)
  - BLOOD BILIRUBIN INCREASED [None]
  - BLOOD CREATINE PHOSPHOKINASE INCREASED [None]
  - VENOOCCLUSIVE LIVER DISEASE [None]
  - ASPARTATE AMINOTRANSFERASE INCREASED [None]
  - ALANINE AMINOTRANSFERASE INCREASED [None]
  - ENCEPHALITIS [None]
  - RHABDOMYOLYSIS [None]
  - THROMBOTIC MICROANGIOPATHY [None]
